FAERS Safety Report 6533823-3 (Version None)
Quarter: 2010Q1

REPORT INFORMATION
  Report Type: 
  Country: None (occurrence: None)
  Receive Date: 20100111
  Receipt Date: 20090706
  Transmission Date: 20100710
  Serious: No
  Sender: FDA-Public Use
  Company Number: US-ABBOTT-09P-163-0581781-00

PATIENT
  Sex: Male
  Weight: 72.64 kg

DRUGS (1)
  1. VICODIN [Suspect]
     Indication: PAIN
     Route: 048
     Dates: start: 20090101, end: 20090401

REACTIONS (4)
  - CONSTIPATION [None]
  - LACRIMATION INCREASED [None]
  - POSTNASAL DRIP [None]
  - SOMNOLENCE [None]
